FAERS Safety Report 6745115-8 (Version None)
Quarter: 2010Q2

REPORT INFORMATION
  Report Type: 
  Country: None (occurrence: None)
  Receive Date: 20100527
  Receipt Date: 20100517
  Transmission Date: 20101027
  Serious: Yes (Hospitalization)
  Sender: FDA-Public Use
  Company Number: JP-WATSON-2010-06871

PATIENT
  Age: 29 Year
  Sex: Male

DRUGS (1)
  1. ZONISAMIDE (WATSON LABORATORIES) [Suspect]
     Indication: TEMPORAL LOBE EPILEPSY
     Dosage: 300 MG, DAILY
     Route: 048

REACTIONS (8)
  - BLOOD IMMUNOGLOBULIN G INCREASED [None]
  - DRUG RASH WITH EOSINOPHILIA AND SYSTEMIC SYMPTOMS [None]
  - EOSINOPHILIA [None]
  - LIVER FUNCTION TEST ABNORMAL [None]
  - LYMPHADENOPATHY [None]
  - PYREXIA [None]
  - RASH [None]
  - RENAL FAILURE ACUTE [None]
